FAERS Safety Report 11582504 (Version 1)
Quarter: 2015Q4

REPORT INFORMATION
  Report Type: Spontaneous
  Country: US (occurrence: US)
  Receive Date: 20151001
  Receipt Date: 20151001
  Transmission Date: 20160304
  Serious: No
  Sender: FDA-Public Use
  Company Number: US-ROCHE-672558

PATIENT
  Sex: Male
  Weight: 93.9 kg

DRUGS (2)
  1. RIBAVIRIN. [Suspect]
     Active Substance: RIBAVIRIN
     Indication: HEPATITIS C
     Dosage: DIVIDED DOSES
     Route: 065
  2. PEGASYS [Suspect]
     Active Substance: PEGINTERFERON ALFA-2A
     Indication: HEPATITIS C
     Dosage: FORM: PFS
     Route: 058

REACTIONS (13)
  - Fatigue [Unknown]
  - Pruritus [Unknown]
  - Memory impairment [Not Recovered/Not Resolved]
  - Arthropathy [Unknown]
  - Dizziness [Not Recovered/Not Resolved]
  - Appetite disorder [Unknown]
  - Insomnia [Recovering/Resolving]
  - Injection site reaction [Unknown]
  - Tinnitus [Unknown]
  - Weight decreased [Unknown]
  - Feeling hot [Not Recovered/Not Resolved]
  - Dry skin [Unknown]
  - Libido decreased [Unknown]
